FAERS Safety Report 17496040 (Version 1)
Quarter: 2020Q1

REPORT INFORMATION
  Report Type: Spontaneous
  Country: US (occurrence: US)
  Receive Date: 20200304
  Receipt Date: 20200304
  Transmission Date: 20200409
  Serious: Yes (Hospitalization)
  Sender: FDA-Public Use
  Company Number: None

PATIENT
  Age: 53 Year
  Sex: Female
  Weight: 77.4 kg

DRUGS (4)
  1. HYDROCODONE BITARTRATE AND ACETAMINOPHEN [Concomitant]
     Active Substance: ACETAMINOPHEN\HYDROCODONE BITARTRATE
  2. EXEMESTANE. [Concomitant]
     Active Substance: EXEMESTANE
  3. EVEROLIMUS. [Suspect]
     Active Substance: EVEROLIMUS
     Indication: BREAST CANCER FEMALE
     Route: 048
     Dates: start: 20191219
  4. AROMASIN [Concomitant]
     Active Substance: EXEMESTANE

REACTIONS (1)
  - Kidney infection [None]

NARRATIVE: CASE EVENT DATE: 20200304
